FAERS Safety Report 8450668-8 (Version None)
Quarter: 2012Q2

REPORT INFORMATION
  Report Type: 
  Country: None (occurrence: None)
  Receive Date: 20120620
  Receipt Date: 20120615
  Transmission Date: 20120825
  Serious: Yes (Congenital Anomaly, Other)
  Sender: FDA-Public Use
  Company Number: US-PFIZER INC-2012146313

PATIENT
  Sex: Female

DRUGS (4)
  1. ZOLOFT [Suspect]
     Dosage: UNK
     Route: 064
     Dates: start: 20090101
  2. SERTRALINE HYDROCHLORIDE [Suspect]
     Dosage: UNK
     Route: 064
     Dates: start: 20080101
  3. SERTRALINE HYDROCHLORIDE [Suspect]
     Dosage: UNK
     Route: 064
     Dates: start: 20090101
  4. ZOLOFT [Suspect]
     Dosage: UNK
     Route: 064
     Dates: start: 20080101

REACTIONS (5)
  - PULMONARY ARTERY ATRESIA [None]
  - PATENT DUCTUS ARTERIOSUS [None]
  - CONGENITAL CORONARY ARTERY MALFORMATION [None]
  - MATERNAL EXPOSURE TIMING UNSPECIFIED [None]
  - HYPOPLASTIC RIGHT HEART SYNDROME [None]
